FAERS Safety Report 10335023 (Version 1)
Quarter: 2014Q3

REPORT INFORMATION
  Report Type: Spontaneous
  Country: FR (occurrence: FR)
  Receive Date: 20140723
  Receipt Date: 20140723
  Transmission Date: 20150326
  Serious: Yes (Other)
  Sender: FDA-Public Use
  Company Number: FR-ASTRAZENECA-2014SE51870

PATIENT
  Age: 21030 Day
  Sex: Female

DRUGS (5)
  1. LIDOCAINE AGUETTANT (NON AZ PRODUCT) [Suspect]
     Active Substance: LIDOCAINE HYDROCHLORIDE
     Dosage: 20 MG OF 200MG/20ML ONCE/SINGLE ADMINISTRATION VIA THE ENDOSCOPE CANAL
     Route: 048
     Dates: start: 20140606, end: 20140606
  2. SERETIDE [Concomitant]
     Active Substance: FLUTICASONE FUROATE\SALMETEROL XINAFOATE
     Route: 055
  3. LOXEN [Concomitant]
     Active Substance: NICARDIPINE HYDROCHLORIDE
  4. XYLOCAINE [Suspect]
     Active Substance: LIDOCAINE HYDROCHLORIDE
     Route: 048
     Dates: start: 20140606, end: 20140606
  5. XYLOCAINE [Suspect]
     Active Substance: LIDOCAINE HYDROCHLORIDE
     Route: 002
     Dates: start: 20140606, end: 20140606

REACTIONS (6)
  - Loss of consciousness [Recovered/Resolved]
  - Dysarthria [None]
  - Hypertensive crisis [Recovered/Resolved]
  - Dysarthria [Recovered/Resolved]
  - Hypotonia [None]
  - Incorrect dose administered [Recovered/Resolved]

NARRATIVE: CASE EVENT DATE: 20140606
